FAERS Safety Report 21330903 (Version 2)
Quarter: 2022Q3

REPORT INFORMATION
  Report Type: Spontaneous
  Country: US (occurrence: US)
  Receive Date: 20220914
  Receipt Date: 20220927
  Transmission Date: 20221027
  Serious: No
  Sender: FDA-Public Use
  Company Number: US-TEVA-2022-US-2071942

PATIENT

DRUGS (2)
  1. CLONAZEPAM [Suspect]
     Active Substance: CLONAZEPAM
     Indication: Balance disorder
     Dosage: .25 MILLIGRAM DAILY; STRENGTH: 0.5 MG, 2 QUARTERS OF A PILL A DAY FOR 2 WEEKS
     Route: 048
     Dates: start: 2022
  2. CLONAZEPAM [Suspect]
     Active Substance: CLONAZEPAM
     Indication: Anxiety
     Dosage: .25 MILLIGRAM DAILY; STRENGTH: 0.125 MG, DURATION 3 YEARS
     Dates: end: 2019

REACTIONS (3)
  - Withdrawal syndrome [Unknown]
  - Constipation [Unknown]
  - Depression [Unknown]

NARRATIVE: CASE EVENT DATE: 20220101
